FAERS Safety Report 17039018 (Version 2)
Quarter: 2019Q4

REPORT INFORMATION
  Report Type: Report from Study
  Country: ES (occurrence: ES)
  Receive Date: 20191115
  Receipt Date: 20191127
  Transmission Date: 20200122
  Serious: Yes (Hospitalization, Other)
  Sender: FDA-Public Use
  Company Number: ES-GILEAD-2019-0431190

PATIENT
  Sex: Male

DRUGS (23)
  1. ACFOL [Concomitant]
     Active Substance: FOLIC ACID
     Route: 048
     Dates: start: 20170628
  2. AMBINERV [Concomitant]
     Route: 055
     Dates: start: 20170630
  3. TACROLIMUS. [Concomitant]
     Active Substance: TACROLIMUS
     Route: 048
     Dates: start: 20170628, end: 20170714
  4. MAGNESIUM [Concomitant]
     Active Substance: MAGNESIUM
     Route: 048
     Dates: start: 20170630
  5. VESICARE [Concomitant]
     Active Substance: SOLIFENACIN SUCCINATE
     Indication: CYSTITIS
     Route: 048
     Dates: start: 20170710
  6. ACYCLOVIR [ACICLOVIR] [Concomitant]
     Active Substance: ACYCLOVIR
     Indication: ANTIVIRAL PROPHYLAXIS
     Route: 048
     Dates: start: 20161102
  7. ELEVIT [MINERALS NOS;VITAMINS NOS] [Concomitant]
     Route: 048
     Dates: start: 20170628
  8. MYCOPHENOLATE [Concomitant]
     Active Substance: MYCOPHENOLIC ACID
     Route: 048
     Dates: start: 20170628
  9. PENTAMIDINE [Concomitant]
     Active Substance: PENTAMIDINE
     Indication: ANTIFUNGAL PROPHYLAXIS
     Route: 055
     Dates: start: 20170710
  10. BEMIPARIN SODIUM [Concomitant]
     Active Substance: BEMIPARIN SODIUM
     Indication: THROMBOSIS PROPHYLAXIS
     Route: 058
     Dates: start: 20161031
  11. MYCOSTATIN [Concomitant]
     Active Substance: NYSTATIN
     Route: 049
     Dates: start: 20170710
  12. LEXXEMA [Concomitant]
     Route: 061
     Dates: start: 20170627, end: 20170706
  13. SEPTRIN [Concomitant]
     Active Substance: SULFAMETHOXAZOLE\TRIMETHOPRIM
     Route: 048
     Dates: start: 2015
  14. TOLTERODINE [Concomitant]
     Active Substance: TOLTERODINE
     Indication: CYSTITIS
     Route: 048
     Dates: start: 20170613, end: 20170803
  15. AMIKACYN [Concomitant]
     Indication: PNEUMONIA KLEBSIELLA
     Dosage: UNK
  16. IDELALISIB [Suspect]
     Active Substance: IDELALISIB
     Indication: B-CELL LYMPHOMA
     Dosage: 150 MG, BID
     Route: 048
     Dates: start: 20161108, end: 20170206
  17. VIREAD [Concomitant]
     Active Substance: TENOFOVIR DISOPROXIL FUMARATE
     Indication: ANTIVIRAL PROPHYLAXIS
     Dosage: UNK
     Route: 048
     Dates: start: 201004
  18. URSOCHOL [Concomitant]
     Active Substance: URSODIOL
     Route: 048
     Dates: start: 20170628
  19. AMLODIP [Concomitant]
     Indication: HYPERTENSION
     Route: 048
     Dates: start: 20170628
  20. TEICOPLANIN [Concomitant]
     Active Substance: TEICOPLANIN
     Indication: PNEUMONIA KLEBSIELLA
  21. ACYCLOVIR [ACICLOVIR] [Concomitant]
     Active Substance: ACYCLOVIR
     Route: 048
     Dates: start: 20161102, end: 20170721
  22. OMEPRAZOL [OMEPRAZOLE] [Concomitant]
     Active Substance: OMEPRAZOLE
     Route: 048
     Dates: start: 20170217
  23. MICAFUNGIN. [Concomitant]
     Active Substance: MICAFUNGIN SODIUM

REACTIONS (5)
  - Eczema [Recovered/Resolved]
  - Cytomegalovirus infection [Recovered/Resolved]
  - Oropharyngeal candidiasis [Recovered/Resolved]
  - Acute kidney injury [Recovered/Resolved]
  - Thrombotic microangiopathy [Recovered/Resolved]

NARRATIVE: CASE EVENT DATE: 20170710
